FAERS Safety Report 4688941-1 (Version None)
Quarter: 2005Q2

REPORT INFORMATION
  Report Type: 
  Country: None (occurrence: None)
  Receive Date: 20050613
  Receipt Date: 20050602
  Transmission Date: 20051028
  Serious: Yes (Hospitalization)
  Sender: FDA-Public Use
  Company Number: FR-ROCHE-406607

PATIENT
  Age: 57 Year
  Sex: Female

DRUGS (6)
  1. ROCEPHIN [Suspect]
     Dosage: STRENGTH: 2 GRAMS/40ML.
     Route: 042
     Dates: start: 20050211, end: 20050211
  2. ZOVIRAX [Suspect]
     Indication: DRUG USE FOR UNKNOWN INDICATION
     Route: 042
     Dates: start: 20050210, end: 20050210
  3. CLAMOXYL [Suspect]
     Indication: DRUG USE FOR UNKNOWN INDICATION
     Dosage: REPORTED AS 1.5 X 2
     Route: 042
     Dates: start: 20050210, end: 20050210
  4. GENTAMICIN [Suspect]
     Indication: DRUG USE FOR UNKNOWN INDICATION
     Route: 065
     Dates: start: 20050210, end: 20050210
  5. CLAFORAN [Suspect]
     Indication: DRUG USE FOR UNKNOWN INDICATION
     Dosage: REPORTED AS 3 GRAMS X 2
     Route: 042
     Dates: start: 20050210, end: 20050210
  6. OFLOCET [Concomitant]
     Dosage: 200 MG TWICE PER DAY TAKEN (400 MG PER DAY).
     Route: 048
     Dates: start: 20050211, end: 20050222

REACTIONS (3)
  - COUGH [None]
  - HEPATOSPLENOMEGALY [None]
  - PANCREATITIS ACUTE [None]
